FAERS Safety Report 5885349-8 (Version None)
Quarter: 2008Q3

REPORT INFORMATION
  Report Type: 
  Country: None (occurrence: None)
  Receive Date: 20080915
  Receipt Date: 20080915
  Transmission Date: 20090109
  Serious: Yes (Hospitalization)
  Sender: FDA-Public Use
  Company Number: None

PATIENT
  Age: 22 Year
  Sex: Female
  Weight: 32.659 kg

DRUGS (21)
  1. AMPICILLIN [Suspect]
     Indication: PNEUMONIA
     Dosage: 2 GRAMS EVERY 6 HOURS IV
     Route: 042
     Dates: start: 20080829, end: 20080829
  2. ADVAIR DISKUS 100/50 [Concomitant]
  3. ALBUTEROL [Concomitant]
  4. ACETAMINOPHEN [Concomitant]
  5. ASPIRIN [Concomitant]
  6. AZITHROMYCIN [Concomitant]
  7. PHENAZOPYRIDINE HCL TAB [Concomitant]
  8. DOCUSATE [Concomitant]
  9. DIPHENHYDRAMINE HCL [Concomitant]
  10. EPINEPHRINE [Concomitant]
  11. LUNESTA [Concomitant]
  12. FAMOTIDINE [Concomitant]
  13. FERROUS SULFATE TAB [Concomitant]
  14. VICODIN [Concomitant]
  15. HEPARIN [Concomitant]
  16. NIPEDIPINE [Concomitant]
  17. VITAMIN TAB [Concomitant]
  18. POTASSIUM CHLORIDE [Concomitant]
  19. PREDNISONE TAB [Concomitant]
  20. TERBUTALINE SULFATE [Concomitant]
  21. TIOTROPIUM [Concomitant]

REACTIONS (2)
  - DYSTONIA [None]
  - TREMOR [None]
